FAERS Safety Report 9652511 (Version 1)
Quarter: 2013Q4

REPORT INFORMATION
  Report Type: Spontaneous
  Country: US (occurrence: None)
  Receive Date: 20131028
  Receipt Date: 20131028
  Transmission Date: 20140711
  Serious: No
  Sender: FDA-Public Use
  Company Number: None

PATIENT
  Age: 33 Year
  Sex: Male
  Weight: 74.84 kg

DRUGS (2)
  1. MIRVASO TOPICAL GEL .33% GALDERMA [Suspect]
     Indication: ROSACEA
     Dosage: 5 PEA SIZE DROPS ONCE DAILY APPLIED TO A SURFACE, USUALLY THE SKIN
     Dates: start: 20131019, end: 20131026
  2. MIRVASO TOPICAL GEL .33% GALDERMA [Suspect]
     Indication: ERYTHEMA
     Dosage: 5 PEA SIZE DROPS ONCE DAILY APPLIED TO A SURFACE, USUALLY THE SKIN
     Dates: start: 20131019, end: 20131026

REACTIONS (3)
  - Flushing [None]
  - Erythema [None]
  - Skin injury [None]
